FAERS Safety Report 5034577-2 (Version None)
Quarter: 2006Q2

REPORT INFORMATION
  Report Type: 
  Country: None (occurrence: None)
  Receive Date: 20060621
  Receipt Date: 20060606
  Transmission Date: 20061013
  Serious: Yes (Death, Hospitalization)
  Sender: FDA-Public Use
  Company Number: HU-2006-013383

PATIENT
  Age: 71 Year
  Sex: Female

DRUGS (1)
  1. ULTRAVIST 370 [Suspect]
     Indication: COMPUTERISED TOMOGRAM
     Dosage: 50 ML, 1 DOSE X 10, INTRAVENOUS
     Route: 042
     Dates: start: 20060516, end: 20060516

REACTIONS (4)
  - CIRCULATORY COLLAPSE [None]
  - DYSPNOEA [None]
  - HEADACHE [None]
  - SHOCK [None]
